FAERS Safety Report 25099336 (Version 3)
Quarter: 2025Q2

REPORT INFORMATION
  Report Type: Report from Study
  Country: PT (occurrence: PT)
  Receive Date: 20250320
  Receipt Date: 20250416
  Transmission Date: 20250716
  Serious: Yes (Death, Hospitalization, Other)
  Sender: CSL BEHRING
  Company Number: PT-BEH-2025199553

PATIENT
  Sex: Female

DRUGS (1)
  1. VELTASSA [Suspect]
     Active Substance: PATIROMER
     Route: 065
     Dates: start: 20220329

REACTIONS (10)
  - Death [Fatal]
  - Vomiting [Recovered/Resolved]
  - Chronic kidney disease [Recovered/Resolved]
  - Pneumonia klebsiella [Recovered/Resolved]
  - Cystitis [Recovered/Resolved]
  - Vomiting [Recovered/Resolved]
  - Chronic kidney disease [Recovered/Resolved]
  - Pneumonia klebsiella [Recovered/Resolved]
  - Cystitis [Recovered/Resolved]
  - Hospitalisation [Unknown]

NARRATIVE: CASE EVENT DATE: 20230215
